FAERS Safety Report 7023685-2 (Version None)
Quarter: 2010Q3

REPORT INFORMATION
  Report Type: 
  Country: None (occurrence: None)
  Receive Date: 20100930
  Receipt Date: 20100916
  Transmission Date: 20110219
  Serious: Yes (Life-Threatening, Hospitalization)
  Sender: FDA-Public Use
  Company Number: DE-MYLANLABS-2010S1016966

PATIENT
  Age: 91 Year
  Sex: Male
  Weight: 75 kg

DRUGS (4)
  1. CLOZAPINE [Suspect]
     Indication: SCHIZOPHRENIA
     Dosage: 1-0-1-3
     Dates: end: 20100821
  2. NEUROCIL /00038602/ [Suspect]
     Indication: SCHIZOPHRENIA
     Dosage: DAILY DOSE: 400 MG MILLIGRAM(S) EVERY DAY
     Dates: end: 20100821
  3. CITALOPRAM HYDROBROMIDE [Concomitant]
     Indication: SCHIZOPHRENIA
     Dosage: 1-0.5-0
     Dates: end: 20100821
  4. AMISULPRIDE [Concomitant]
     Indication: SCHIZOPHRENIA
     Dosage: DAILY DOSE: 800 MG MILLIGRAM(S) EVERY DAY
     Dates: end: 20100821

REACTIONS (2)
  - NEUROLEPTIC MALIGNANT SYNDROME [None]
  - RENAL FAILURE ACUTE [None]
